FAERS Safety Report 23462908 (Version 1)
Quarter: 2024Q1

REPORT INFORMATION
  Report Type: Spontaneous
  Country: US (occurrence: None)
  Receive Date: 20240131
  Receipt Date: 20240131
  Transmission Date: 20240410
  Serious: Yes (Other)
  Sender: FDA-Public Use
  Company Number: None

PATIENT
  Age: 46 Year
  Sex: Male

DRUGS (5)
  1. DIVALPROEX SODIUM [Suspect]
     Active Substance: DIVALPROEX SODIUM
     Indication: Seizure
     Dates: start: 20200723, end: 20231117
  2. BUPROPION [Concomitant]
     Active Substance: BUPROPION
     Dates: start: 20160808
  3. CLOZAPINE [Concomitant]
     Active Substance: CLOZAPINE
     Dates: start: 20160808
  4. LEVOTHYROXINE [Concomitant]
     Active Substance: LEVOTHYROXINE\LEVOTHYROXINE SODIUM
     Dates: start: 20160808
  5. LOVASTATIN [Concomitant]
     Active Substance: LOVASTATIN
     Dates: start: 20160808

REACTIONS (1)
  - Hyponatraemia [None]

NARRATIVE: CASE EVENT DATE: 20230901
